FAERS Safety Report 23222335 (Version 1)
Quarter: 2023Q4

REPORT INFORMATION
  Report Type: Spontaneous
  Country: FR (occurrence: FR)
  Receive Date: 20231123
  Receipt Date: 20231123
  Transmission Date: 20240109
  Serious: Yes (Hospitalization)
  Sender: FDA-Public Use
  Company Number: None

PATIENT
  Age: 34 Year
  Sex: Male
  Weight: 81 kg

DRUGS (5)
  1. KEPPRA [Suspect]
     Active Substance: LEVETIRACETAM
     Indication: Epilepsy
     Dosage: 2000 MILLIGRAM PER DAY (1000 MG MORNING AND EVENING)
     Route: 048
  2. LAMICTAL [Suspect]
     Active Substance: LAMOTRIGINE
     Indication: Epilepsy
     Dosage: 75 MG IN MORNING
     Route: 048
  3. TRILEPTAL [Suspect]
     Active Substance: OXCARBAZEPINE
     Indication: Epilepsy
     Dosage: 600 MILLIGRAM PER DAY (300 MG MORNING AND EVENING)
     Route: 048
  4. CLOBAZAM [Suspect]
     Active Substance: CLOBAZAM
     Indication: Epilepsy
     Dosage: 10 MILLIGRAM PER DAY (CHANGE TO 5 MG MORNING AND EVENING SINCE THE BEGINNING OF AUGUST)
     Route: 048
     Dates: start: 202308, end: 20231105
  5. CENOBAMATE [Suspect]
     Active Substance: CENOBAMATE
     Indication: Epilepsy
     Dosage: 125MG PER DAY
     Route: 048
     Dates: start: 202303

REACTIONS (1)
  - Priapism [Recovered/Resolved]

NARRATIVE: CASE EVENT DATE: 20231104
